FAERS Safety Report 7924772-4 (Version None)
Quarter: 2011Q4

REPORT INFORMATION
  Report Type: 
  Country: None (occurrence: None)
  Receive Date: 20111118
  Receipt Date: 20110328
  Transmission Date: 20120403
  Serious: No
  Sender: FDA-Public Use
  Company Number: US-AMGEN-USASP2011016514

PATIENT
  Age: 55 Year
  Sex: Male

DRUGS (1)
  1. ENBREL [Suspect]
     Indication: ANKYLOSING SPONDYLITIS
     Dosage: 50 MG, Q2WK
     Dates: start: 20070525, end: 20110302

REACTIONS (4)
  - RESPIRATORY TRACT CONGESTION [None]
  - UPPER RESPIRATORY TRACT CONGESTION [None]
  - RHINORRHOEA [None]
  - COUGH [None]
